FAERS Safety Report 9928415 (Version 2)
Quarter: 2014Q1

REPORT INFORMATION
  Report Type: Spontaneous
  Country: US (occurrence: US)
  Receive Date: 20140227
  Receipt Date: 20140325
  Transmission Date: 20141002
  Serious: No
  Sender: FDA-Public Use
  Company Number: US-PFIZER INC-2014055963

PATIENT
  Age: 61 Year
  Sex: Male
  Weight: 87.08 kg

DRUGS (3)
  1. XELJANZ [Suspect]
     Indication: ARTHRITIS
     Dosage: 5 MG, 2X/DAY
     Dates: start: 201311
  2. LOSARTAN [Concomitant]
     Indication: HYPERTENSION
     Dosage: 50 MG, 1X/DAY
  3. ALLOPURINOL [Concomitant]
     Indication: GOUT
     Dosage: 200 MG, 1X/DAY

REACTIONS (2)
  - Dental caries [Unknown]
  - Dysgeusia [Unknown]
